FAERS Safety Report 5050107-3 (Version None)
Quarter: 2006Q3

REPORT INFORMATION
  Report Type: 
  Country: None (occurrence: None)
  Receive Date: 20060707
  Receipt Date: 20060627
  Transmission Date: 20061208
  Serious: Yes (Death, Hospitalization, Other)
  Sender: FDA-Public Use
  Company Number: GB-2006-012514

PATIENT
  Sex: Male

DRUGS (3)
  1. ULTRAVIST (PHARMACY BULK) [Suspect]
     Indication: COMPUTERISED TOMOGRAM ABDOMEN
     Dosage: ML
     Dates: start: 20050418, end: 20050418
  2. GADOVIST 1.0 (GADOBUTROL) SOLUTION [Suspect]
     Indication: NUCLEAR MAGNETIC RESONANCE IMAGING
     Dosage: ML
     Dates: start: 20050421, end: 20050421
  3. NALOXONE [Suspect]
     Dates: start: 20050628, end: 20050628

REACTIONS (15)
  - BLOOD CREATININE INCREASED [None]
  - DEPRESSED LEVEL OF CONSCIOUSNESS [None]
  - DIABETES MELLITUS INADEQUATE CONTROL [None]
  - DIALYSIS [None]
  - FLUID OVERLOAD [None]
  - GLASGOW COMA SCALE ABNORMAL [None]
  - INTESTINAL INFARCTION [None]
  - MALAISE [None]
  - MIOSIS [None]
  - MULTI-ORGAN FAILURE [None]
  - MYOCARDIAL ISCHAEMIA [None]
  - NEPHROPATHY TOXIC [None]
  - OEDEMA [None]
  - SHOCK [None]
  - SLEEP DISORDER [None]
